FAERS Safety Report 12703207 (Version 4)
Quarter: 2016Q4

REPORT INFORMATION
  Report Type: Report from Study
  Country: ES (occurrence: ES)
  Receive Date: 20160831
  Receipt Date: 20161021
  Transmission Date: 20170207
  Serious: Yes (Other)
  Sender: FDA-Public Use
  Company Number: ES-ROCHE-1781048

PATIENT
  Age: 55 Year
  Sex: Male
  Weight: 106 kg

DRUGS (8)
  1. ATORVASTATIN [Concomitant]
     Active Substance: ATORVASTATIN
     Indication: DYSLIPIDAEMIA
     Route: 048
     Dates: start: 20160330
  2. OMEPRAZOLE. [Concomitant]
     Active Substance: OMEPRAZOLE
     Indication: GASTRITIS
     Route: 048
     Dates: start: 20120317
  3. METAMIZOLE [Concomitant]
     Active Substance: METAMIZOLE
     Indication: PAIN
     Route: 048
     Dates: start: 20151124
  4. COBIMETINIB [Suspect]
     Active Substance: COBIMETINIB
     Indication: MALIGNANT MELANOMA STAGE IV
     Dosage: 1/24 HOURS DURING 3 WEEKS
     Route: 048
     Dates: start: 20150714, end: 20160526
  5. VEMURAFENIB [Suspect]
     Active Substance: VEMURAFENIB
     Indication: MALIGNANT MELANOMA STAGE IV
     Route: 048
     Dates: start: 20150616, end: 20160526
  6. VEMURAFENIB [Suspect]
     Active Substance: VEMURAFENIB
     Route: 048
     Dates: start: 20160609, end: 20160804
  7. COBIMETINIB [Suspect]
     Active Substance: COBIMETINIB
     Route: 048
     Dates: start: 20160609, end: 20160804
  8. LERCANIDIPINE [Concomitant]
     Active Substance: LERCANIDIPINE
     Indication: DYSLIPIDAEMIA
     Route: 048
     Dates: start: 20160225

REACTIONS (9)
  - Anaemia [Recovering/Resolving]
  - Rash [Recovered/Resolved]
  - Renal failure [Recovered/Resolved]
  - Renal impairment [Recovered/Resolved]
  - Treatment failure [Unknown]
  - Hypertension [Recovered/Resolved]
  - Arthralgia [Recovering/Resolving]
  - Solar dermatitis [Recovered/Resolved]
  - Asthenia [Recovering/Resolving]

NARRATIVE: CASE EVENT DATE: 20150803
